FAERS Safety Report 15685112 (Version 1)
Quarter: 2018Q4

REPORT INFORMATION
  Report Type: Spontaneous
  Country: US (occurrence: US)
  Receive Date: 20181204
  Receipt Date: 20181204
  Transmission Date: 20190205
  Serious: No
  Sender: FDA-Public Use
  Company Number: US-009507513-1811USA002549

PATIENT
  Sex: Female

DRUGS (3)
  1. NEXPLANON [Suspect]
     Active Substance: ETONOGESTREL
     Dosage: 1 DOSAGE FORM (68 MG; SECOND IMPLANT)
     Route: 059
     Dates: start: 20181030, end: 20181105
  2. NEXPLANON [Suspect]
     Active Substance: ETONOGESTREL
     Dosage: 1 DOSAGE FORM (68 MG; THIRD IMPLANT)
     Route: 059
     Dates: start: 20181105
  3. NEXPLANON [Suspect]
     Active Substance: ETONOGESTREL
     Dosage: 1 DOSAGE FORM (68 MG)
     Route: 059
     Dates: end: 20181030

REACTIONS (6)
  - Implant site bruising [Unknown]
  - Implant site swelling [Unknown]
  - Implant site pain [Unknown]
  - Discomfort [Unknown]
  - Implant site haemorrhage [Unknown]
  - Complication associated with device [Unknown]

NARRATIVE: CASE EVENT DATE: 2018
